FAERS Safety Report 7694515-0 (Version None)
Quarter: 2011Q3

REPORT INFORMATION
  Report Type: 
  Country: None (occurrence: None)
  Receive Date: 20110819
  Receipt Date: 20110817
  Transmission Date: 20111222
  Serious: Yes (Death, Hospitalization)
  Sender: FDA-Public Use
  Company Number: PHHO2011TR14008

PATIENT
  Sex: Male
  Weight: 75 kg

DRUGS (2)
  1. EVEROLIMUS [Suspect]
     Dosage: 10 MG, UNK
     Route: 048
     Dates: start: 20110602, end: 20110718
  2. ALLOPURINOL [Suspect]

REACTIONS (1)
  - DEATH [None]
